FAERS Safety Report 10185142 (Version 1)
Quarter: 2014Q2

REPORT INFORMATION
  Report Type: Spontaneous
  Country: US (occurrence: None)
  Receive Date: 20140520
  Receipt Date: 20140520
  Transmission Date: 20141212
  Serious: No
  Sender: FDA-Public Use
  Company Number: None

PATIENT
  Age: 59 Year
  Sex: Female

DRUGS (1)
  1. ENBREL 50 MG [Suspect]
     Indication: RHEUMATOID ARTHRITIS
     Dosage: ENBREL 50MG QW SQ
     Route: 058
     Dates: start: 20131122, end: 20140614

REACTIONS (2)
  - Headache [None]
  - Bone pain [None]
